FAERS Safety Report 7508425-2 (Version None)
Quarter: 2011Q2

REPORT INFORMATION
  Report Type: 
  Country: None (occurrence: None)
  Receive Date: 20110527
  Receipt Date: 20110523
  Transmission Date: 20111010
  Serious: Yes (Other)
  Sender: FDA-Public Use
  Company Number: US-PFIZER INC-2011041770

PATIENT
  Sex: Male

DRUGS (21)
  1. PROPECIA [Concomitant]
     Indication: ALOPECIA
     Dosage: UNK
     Dates: start: 19990101
  2. HYDROCORTISONE [Concomitant]
     Indication: PRURITUS
     Dosage: UNK
     Dates: start: 20040101
  3. RETIN-A [Concomitant]
     Indication: FOLLICULITIS
     Dosage: UNK
     Dates: start: 20040101, end: 20080101
  4. RETIN-A [Concomitant]
     Indication: ROSACEA
  5. METHSCOPOLAMINE/PSEUDOEPHEDRINE [Concomitant]
     Indication: COLITIS
     Dosage: UNK
     Dates: start: 20000101
  6. CHANTIX [Suspect]
     Indication: SMOKING CESSATION THERAPY
     Dosage: UNK, (STARTER PACK AND MULTIPLE CONTINUING PACKS)
     Dates: start: 20071020, end: 20101001
  7. BENTYL [Concomitant]
     Indication: COLITIS
     Dosage: UNK
     Dates: start: 20000101
  8. AZELAIC ACID [Concomitant]
     Indication: FOLLICULITIS
     Dosage: UNK
     Dates: start: 20060101, end: 20100101
  9. ANALPRAM-HC [Concomitant]
     Indication: COLITIS
     Dosage: UNK
     Dates: start: 20050101, end: 20080101
  10. SYNTHROID [Concomitant]
     Indication: GOITRE
     Dosage: UNK
     Dates: start: 19990101
  11. TETRACYCLINE [Concomitant]
     Indication: ANTIBIOTIC THERAPY
     Dosage: UNK
     Dates: start: 20040101, end: 20100101
  12. BACTROBAN [Concomitant]
     Indication: ANTIBIOTIC THERAPY
     Dosage: UNK
     Dates: start: 20040101, end: 20080101
  13. HYOSCYAMINE [Concomitant]
     Indication: COLITIS
     Dosage: UNK
     Dates: start: 20040101, end: 20080101
  14. SUMYCIN [Concomitant]
     Indication: INFECTION
     Dosage: UNK
     Dates: start: 19910101, end: 20100101
  15. AZELAIC ACID [Concomitant]
     Indication: ROSACEA
  16. XANAX [Concomitant]
     Indication: ANXIETY
     Dosage: UNK
     Dates: start: 19950101
  17. FAMVIR [Concomitant]
     Indication: HERPES VIRUS INFECTION
     Dosage: UNK
     Dates: start: 20040101, end: 20080101
  18. LEVOTHYROXINE [Concomitant]
     Indication: THYROID DISORDER
     Dosage: UNK
     Dates: start: 20050101, end: 20100101
  19. BENZOYL PEROXIDE [Concomitant]
     Indication: FOLLICULITIS
     Dosage: UNK
     Dates: start: 20040101, end: 20100101
  20. BENZOYL PEROXIDE [Concomitant]
     Indication: ROSACEA
  21. NEXIUM [Concomitant]
     Indication: OESOPHAGITIS
     Dosage: UNK
     Dates: start: 20060101, end: 20100101

REACTIONS (4)
  - SUICIDAL IDEATION [None]
  - DEPRESSION [None]
  - AGGRESSION [None]
  - ANXIETY [None]
